FAERS Safety Report 24111691 (Version 3)
Quarter: 2024Q3

REPORT INFORMATION
  Report Type: Report from Study
  Country: FR (occurrence: FR)
  Receive Date: 20240718
  Receipt Date: 20240926
  Transmission Date: 20241016
  Serious: Yes (Death)
  Sender: PFIZER
  Company Number: FR-PFM-2024-04059

PATIENT
  Age: 76 Year
  Weight: 90 kg

DRUGS (18)
  1. ENCORAFENIB [Suspect]
     Active Substance: ENCORAFENIB
     Indication: Malignant melanoma
     Dosage: 450 MG DAILY
     Route: 065
     Dates: start: 20240403, end: 20240411
  2. ENCORAFENIB [Suspect]
     Active Substance: ENCORAFENIB
     Dosage: 450 MG DAILY
     Route: 065
     Dates: start: 20240430, end: 20240628
  3. ENCORAFENIB [Suspect]
     Active Substance: ENCORAFENIB
     Dosage: 300 MG
     Route: 065
     Dates: start: 20240712
  4. BINIMETINIB [Suspect]
     Active Substance: BINIMETINIB
     Indication: Malignant melanoma
     Dosage: 90 MG DAILY
     Route: 065
     Dates: start: 20240403, end: 20240411
  5. BINIMETINIB [Suspect]
     Active Substance: BINIMETINIB
     Dosage: 60 MG DAILY
     Route: 065
     Dates: start: 20240430, end: 20240628
  6. BINIMETINIB [Suspect]
     Active Substance: BINIMETINIB
     Dosage: 60 MG
     Route: 065
     Dates: start: 20240712
  7. FUROSEMIDE [Concomitant]
     Active Substance: FUROSEMIDE
     Indication: Hypertension
     Dosage: 40 MG, QD (1/DAY)
     Route: 065
     Dates: start: 20240304
  8. BISOPROLOL FUMARATE [Concomitant]
     Active Substance: BISOPROLOL FUMARATE
     Indication: Hypertension
     Dosage: 2.5 MG, QD (1/DAY)
     Route: 065
     Dates: start: 20240304
  9. AMIODARONE [Concomitant]
     Active Substance: AMIODARONE
     Indication: Prophylaxis
     Dosage: 200 MG, QD (1/DAY)
     Route: 065
     Dates: start: 20240304
  10. COVERAM [Concomitant]
     Active Substance: AMLODIPINE\PERINDOPRIL
     Indication: Hypertension
     Dosage: 10 MG, QD (1/DAY)
     Route: 065
     Dates: start: 20240304
  11. PREDNISONE [Concomitant]
     Active Substance: PREDNISONE
     Indication: Immune-mediated myocarditis
     Dosage: 80 MG, QD (1/DAY)
     Route: 065
     Dates: start: 20240401
  12. PANTOPRAZOLE SODIUM [Concomitant]
     Active Substance: PANTOPRAZOLE SODIUM
     Indication: Haemorrhage
     Dosage: 40 MG, QD (1/DAY)
     Route: 065
     Dates: start: 20240412, end: 20240416
  13. LANSOPRAZOLE [Concomitant]
     Active Substance: LANSOPRAZOLE
     Indication: Haemorrhage
     Dosage: 30 MG, QD (1/DAY)
     Route: 065
     Dates: start: 20240420
  14. KARDEGIC [Concomitant]
     Active Substance: ASPIRIN DL-LYSINE
     Indication: Prophylaxis
     Dosage: 75 MG, DAILY
     Route: 065
     Dates: start: 20240415
  15. FUROSEMIDE [Concomitant]
     Active Substance: FUROSEMIDE
     Indication: Hypertension
     Dosage: 40 MG DAILY
     Route: 065
     Dates: start: 20240415
  16. POTASSIUM CHLORIDE [Concomitant]
     Active Substance: POTASSIUM CHLORIDE
     Indication: Hypokalaemia
     Dosage: 1200 MG DAILY
     Route: 065
     Dates: start: 20240415
  17. SMECTA [Concomitant]
     Active Substance: MONTMORILLONITE
     Indication: Diarrhoea
     Dosage: 3 G, TID (3/DAY)
     Route: 065
     Dates: start: 20240415
  18. RACECADOTRIL [Concomitant]
     Active Substance: RACECADOTRIL
     Indication: Diarrhoea
     Dosage: 300 MG, TID (3/DAY)
     Route: 065
     Dates: start: 20240415

REACTIONS (1)
  - Neurological decompensation [Fatal]

NARRATIVE: CASE EVENT DATE: 20240709
